FAERS Safety Report 16978955 (Version 3)
Quarter: 2019Q4

REPORT INFORMATION
  Report Type: Report from Study
  Country: GB (occurrence: GB)
  Receive Date: 20191031
  Receipt Date: 20191203
  Transmission Date: 20200122
  Serious: Yes (Other)
  Sender: FDA-Public Use
  Company Number: GB-JNJFOC-20191043752

PATIENT
  Sex: Female

DRUGS (1)
  1. STELARA [Suspect]
     Active Substance: USTEKINUMAB
     Indication: CROHN^S DISEASE
     Route: 058
     Dates: start: 20180522

REACTIONS (4)
  - Drug ineffective [Unknown]
  - Tympanic membrane perforation [Unknown]
  - Diarrhoea [Unknown]
  - Ear infection [Unknown]

NARRATIVE: CASE EVENT DATE: 2018
